FAERS Safety Report 7508389-1 (Version None)
Quarter: 2011Q2

REPORT INFORMATION
  Report Type: 
  Country: None (occurrence: None)
  Receive Date: 20110527
  Receipt Date: 20110518
  Transmission Date: 20111010
  Serious: Yes (Hospitalization)
  Sender: FDA-Public Use
  Company Number: US-NOVOPROD-328479

PATIENT
  Sex: Female
  Weight: 58.05 kg

DRUGS (2)
  1. NOVOLOG [Suspect]
     Dosage: BASAL AND BOLUS
     Route: 058
  2. NOVOLOG [Suspect]
     Indication: TYPE 1 DIABETES MELLITUS
     Dosage: BASAL AND BOLUS
     Route: 058

REACTIONS (4)
  - DIARRHOEA [None]
  - DRUG INEFFECTIVE [None]
  - INFECTION [None]
  - BLOOD GLUCOSE INCREASED [None]
